FAERS Safety Report 5732797-2 (Version None)
Quarter: 2008Q2

REPORT INFORMATION
  Report Type: 
  Country: None (occurrence: None)
  Receive Date: 20080507
  Receipt Date: 20080507
  Transmission Date: 20081010
  Serious: No
  Sender: FDA-Public Use
  Company Number: None

PATIENT
  Sex: Male
  Weight: 77 kg

DRUGS (3)
  1. FLUOROURACIL [Suspect]
     Dosage: 14736 MG
     Dates: end: 20080406
  2. BEVACIZUMAB (RHUMAB VEGF) [Suspect]
     Dosage: 2258 MG
     Dates: end: 20080402
  3. CISPLATIN [Suspect]
     Dosage: 205 MG
     Dates: end: 20080402

REACTIONS (6)
  - CLOSTRIDIAL INFECTION [None]
  - DEHYDRATION [None]
  - DIARRHOEA [None]
  - MUCOSAL INFLAMMATION [None]
  - NEUTROPENIA [None]
  - RENAL FAILURE [None]
